FAERS Safety Report 9059757 (Version 1)
Quarter: 2013Q1

REPORT INFORMATION
  Report Type: Spontaneous
  Country: US (occurrence: None)
  Receive Date: 20130206
  Receipt Date: 20130206
  Transmission Date: 20140127
  Serious: Yes (Disabling)
  Sender: FDA-Public Use
  Company Number: None

PATIENT
  Age: 64 Year
  Sex: Male
  Weight: 52.16 kg

DRUGS (2)
  1. LEVOFLOXACIN [Suspect]
     Indication: DIVERTICULITIS
     Dosage: 1 TABLET, DAILY, PO
     Route: 048
     Dates: start: 20121102, end: 20121231
  2. LEVOFLOXACIN [Suspect]
     Indication: ABDOMINAL ABSCESS
     Dosage: 1 TABLET, DAILY, PO
     Route: 048
     Dates: start: 20121102, end: 20121231

REACTIONS (6)
  - Pain in extremity [None]
  - Pain in extremity [None]
  - Hypoaesthesia [None]
  - Hypoaesthesia [None]
  - Hypoaesthesia [None]
  - Pain in extremity [None]
